FAERS Safety Report 20830150 (Version 4)
Quarter: 2022Q4

REPORT INFORMATION
  Report Type: Report from Study
  Country: US (occurrence: US)
  Receive Date: 20220514
  Receipt Date: 20221209
  Transmission Date: 20230113
  Serious: Yes (Hospitalization, Other)
  Sender: FDA-Public Use
  Company Number: US-TAKEDA-2022TUS029742

PATIENT
  Sex: Female

DRUGS (8)
  1. TEDUGLUTIDE [Suspect]
     Active Substance: TEDUGLUTIDE
     Indication: Short-bowel syndrome
     Dosage: 3.325 MILLIGRAM, QD
     Route: 058
     Dates: start: 20211201
  2. TEDUGLUTIDE [Suspect]
     Active Substance: TEDUGLUTIDE
     Indication: Short-bowel syndrome
     Dosage: 3.325 MILLIGRAM, QD
     Route: 058
     Dates: start: 20211201
  3. TEDUGLUTIDE [Suspect]
     Active Substance: TEDUGLUTIDE
     Indication: Short-bowel syndrome
     Dosage: 3.325 MILLIGRAM, QD
     Route: 058
     Dates: start: 20211201
  4. TEDUGLUTIDE [Suspect]
     Active Substance: TEDUGLUTIDE
     Indication: Short-bowel syndrome
     Dosage: 3.325 MILLIGRAM, QD
     Route: 058
     Dates: start: 20211201
  5. TEDUGLUTIDE [Suspect]
     Active Substance: TEDUGLUTIDE
     Dosage: 3.25 MILLIGRAM, QD
     Route: 058
     Dates: start: 20211201
  6. TEDUGLUTIDE [Suspect]
     Active Substance: TEDUGLUTIDE
     Dosage: 3.25 MILLIGRAM, QD
     Route: 058
     Dates: start: 20211201
  7. TEDUGLUTIDE [Suspect]
     Active Substance: TEDUGLUTIDE
     Dosage: 3.25 MILLIGRAM, QD
     Route: 058
     Dates: start: 20211201
  8. TEDUGLUTIDE [Suspect]
     Active Substance: TEDUGLUTIDE
     Dosage: 3.25 MILLIGRAM, QD
     Route: 058
     Dates: start: 20211201

REACTIONS (8)
  - Adverse drug reaction [Unknown]
  - Gastrointestinal oedema [Unknown]
  - Mass [Unknown]
  - Pain [Unknown]
  - Condition aggravated [Unknown]
  - Stoma site discomfort [Unknown]
  - Stoma site pain [Unknown]
  - Poor quality sleep [Unknown]
